FAERS Safety Report 21053222 (Version 1)
Quarter: 2022Q3

REPORT INFORMATION
  Report Type: Spontaneous
  Country: DE (occurrence: DE)
  Receive Date: 20220707
  Receipt Date: 20220707
  Transmission Date: 20221027
  Serious: Yes (Other)
  Sender: FDA-Public Use
  Company Number: DE-ORGANON-O2203DEU002611

PATIENT
  Age: 19 Year
  Sex: Female

DRUGS (1)
  1. ETHINYL ESTRADIOL\ETONOGESTREL [Suspect]
     Active Substance: ETHINYL ESTRADIOL\ETONOGESTREL
     Indication: Contraception
     Dosage: STRENGTH: 0.125 MG/0.015 MG; CONTRACEPTION WITH ETONOGESTREL (+) ETHINYL ESTRADIOL (NUVARING) NO LON
     Route: 067
     Dates: start: 202009, end: 2021

REACTIONS (8)
  - Pulmonary embolism [Unknown]
  - Pneumonia [Unknown]
  - Near death experience [Unknown]
  - Muscle tightness [Recovering/Resolving]
  - Fibrin D dimer increased [Recovered/Resolved]
  - Troponin I decreased [Recovered/Resolved]
  - Chest pain [Unknown]
  - Adverse event [Unknown]

NARRATIVE: CASE EVENT DATE: 20210101
